FAERS Safety Report 8424222-8 (Version None)
Quarter: 2012Q2

REPORT INFORMATION
  Report Type: 
  Country: None (occurrence: None)
  Receive Date: 20120608
  Receipt Date: 20120423
  Transmission Date: 20120825
  Serious: No
  Sender: FDA-Public Use
  Company Number: US-ASTRAZENECA-2012SE22349

PATIENT
  Age: 65 Year
  Sex: Female
  Weight: 81.6 kg

DRUGS (2)
  1. TRAMADOL HCL [Concomitant]
     Indication: FIBROMYALGIA
  2. PULMICORT FLEXHALER [Suspect]
     Indication: SARCOIDOSIS
     Dosage: 2 PUFFS QD
     Route: 055

REACTIONS (4)
  - MALAISE [None]
  - OFF LABEL USE [None]
  - RESPIRATORY DISORDER [None]
  - INCREASED UPPER AIRWAY SECRETION [None]
